FAERS Safety Report 6606639-7 (Version None)
Quarter: 2010Q1

REPORT INFORMATION
  Report Type: 
  Country: None (occurrence: None)
  Receive Date: 20100226
  Receipt Date: 20100218
  Transmission Date: 20100710
  Serious: Yes (Other)
  Sender: FDA-Public Use
  Company Number: US-JNJFOC-20090908927

PATIENT
  Sex: Female
  Weight: 14.3 kg

DRUGS (1)
  1. CHILDREN'S TYLENOL PLUS COUGH + RUNNY NOSE CHERRY [Suspect]
     Indication: DRUG USE FOR UNKNOWN INDICATION
     Route: 048

REACTIONS (3)
  - COUGH [None]
  - RHINORRHOEA [None]
  - TRANSMISSION OF AN INFECTIOUS AGENT VIA A MEDICINAL PRODUCT [None]
